FAERS Safety Report 4704496-7 (Version None)
Quarter: 2005Q2

REPORT INFORMATION
  Report Type: 
  Country: None (occurrence: None)
  Receive Date: 20050628
  Receipt Date: 20050613
  Transmission Date: 20051028
  Serious: Yes (Other)
  Sender: FDA-Public Use
  Company Number: US_020988270

PATIENT
  Age: 60 Year
  Sex: Male
  Weight: 72 kg

DRUGS (4)
  1. ONCOVIN [Suspect]
     Indication: LYMPHOMA
     Dosage: 2.5 MG OTHER
     Dates: start: 19990327, end: 19990510
  2. CYCLOPHOSPHAMIDE [Concomitant]
  3. DOXORUBICIN HYDROCHLORIDE [Concomitant]
  4. PREDNISOLONE [Concomitant]

REACTIONS (12)
  - ADENOCARCINOMA [None]
  - BLOOD PRESSURE INCREASED [None]
  - BRONCHIECTASIS [None]
  - CONDITION AGGRAVATED [None]
  - DRUG INEFFECTIVE [None]
  - DYSPNOEA [None]
  - HYPOXIA [None]
  - LUNG DISORDER [None]
  - MALAISE [None]
  - MASS [None]
  - PNEUMONITIS [None]
  - RESPIRATORY RATE INCREASED [None]
